FAERS Safety Report 25424637 (Version 1)
Quarter: 2025Q2

REPORT INFORMATION
  Report Type: Spontaneous
  Country: CN (occurrence: CN)
  Receive Date: 20250611
  Receipt Date: 20250611
  Transmission Date: 20250716
  Serious: Yes (Other)
  Sender: MYLAN
  Company Number: CN-MYLANLABS-2025M1048483

PATIENT
  Age: 50 Year
  Sex: Female
  Weight: 54 kg

DRUGS (2)
  1. CELEBREX [Suspect]
     Active Substance: CELECOXIB
     Indication: Analgesic therapy
     Dosage: 0.2 GRAM, BID
     Dates: start: 20250528, end: 20250528
  2. CELEBREX [Suspect]
     Active Substance: CELECOXIB
     Indication: Arthralgia

REACTIONS (1)
  - Eye swelling [Recovered/Resolved]

NARRATIVE: CASE EVENT DATE: 20250528
